FAERS Safety Report 16884089 (Version 1)
Quarter: 2019Q4

REPORT INFORMATION
  Report Type: Spontaneous
  Country: US (occurrence: US)
  Receive Date: 20190808
  Receipt Date: 20190808
  Transmission Date: 20200122
  Serious: Yes (Hospitalization)
  Sender: FDA-Public Use
  Company Number: None

PATIENT
  Sex: Female

DRUGS (19)
  1. PRONTONIX [Concomitant]
  2. SYMBICORT [Concomitant]
     Active Substance: BUDESONIDE\FORMOTEROL FUMARATE DIHYDRATE
  3. TRAZODONE [Concomitant]
     Active Substance: TRAZODONE HYDROCHLORIDE
  4. ENBREL [Suspect]
     Active Substance: ETANERCEPT
     Indication: RHEUMATOID ARTHRITIS
     Route: 058
     Dates: start: 20190125
  5. ALBUTEROL. [Concomitant]
     Active Substance: ALBUTEROL
  6. ASMANEX 14 [Concomitant]
  7. PAXIL [Concomitant]
     Active Substance: PAROXETINE HYDROCHLORIDE
  8. BUPROPION. [Concomitant]
     Active Substance: BUPROPION
  9. METHOTREXATE. [Concomitant]
     Active Substance: METHOTREXATE
  10. SPIRIVA [Concomitant]
     Active Substance: TIOTROPIUM BROMIDE MONOHYDRATE
  11. FOLIC ACID. [Concomitant]
     Active Substance: FOLIC ACID
  12. OSELTAMIVIR [Concomitant]
     Active Substance: OSELTAMIVIR
  13. VIT D [Concomitant]
     Active Substance: VITAMIN D NOS
  14. DIOVAN [Concomitant]
     Active Substance: VALSARTAN
  15. PREDNISONE. [Concomitant]
     Active Substance: PREDNISONE
  16. RANITIDINE. [Concomitant]
     Active Substance: RANITIDINE
  17. SINGULAIR [Concomitant]
     Active Substance: MONTELUKAST SODIUM
  18. FLUTICASONE SPR [Concomitant]
  19. XOLAIR [Suspect]
     Active Substance: OMALIZUMAB
     Indication: ASTHMA
     Dosage: ?          OTHER FREQUENCY:EVERY 28DAYS;?
     Route: 058
     Dates: start: 20150922

REACTIONS (3)
  - Cellulitis [None]
  - Weight increased [None]
  - Swelling [None]
